FAERS Safety Report 6641310-7 (Version None)
Quarter: 2010Q1

REPORT INFORMATION
  Report Type: 
  Country: None (occurrence: None)
  Receive Date: 20100303
  Receipt Date: 20090626
  Transmission Date: 20100710
  Serious: No
  Sender: FDA-Public Use
  Company Number: 288995

PATIENT
  Age: 62 Year
  Sex: Female

DRUGS (1)
  1. NOVOLIN 70/30 (INSULIN HUMAN) [Suspect]
     Indication: INSULIN-REQUIRING TYPE 2 DIABETES MELLITUS
     Dosage: SUBCUTANEOUS
     Route: 058

REACTIONS (4)
  - ARTHRALGIA [None]
  - DIZZINESS [None]
  - MUSCLE SPASMS [None]
  - MYALGIA [None]
